FAERS Safety Report 7321393-1 (Version None)
Quarter: 2011Q1

REPORT INFORMATION
  Report Type: 
  Country: None (occurrence: None)
  Receive Date: 20110228
  Receipt Date: 20110201
  Transmission Date: 20110831
  Serious: No
  Sender: FDA-Public Use
  Company Number: US-B.I. PHARMACEUTICALS,INC./RIDGEFIELD-2011-BP-03163BP

PATIENT
  Age: 85 Year
  Sex: Male

DRUGS (3)
  1. AGGRENOX [Suspect]
     Indication: TRANSIENT ISCHAEMIC ATTACK
     Route: 048
     Dates: start: 20110129, end: 20110201
  2. PROTONIX [Concomitant]
  3. FLOMAX [Concomitant]

REACTIONS (2)
  - PAIN IN EXTREMITY [None]
  - DIARRHOEA [None]
